FAERS Safety Report 16230376 (Version 1)
Quarter: 2019Q2

REPORT INFORMATION
  Report Type: Spontaneous
  Country: HU (occurrence: HU)
  Receive Date: 20190423
  Receipt Date: 20190423
  Transmission Date: 20190711
  Serious: Yes (Hospitalization)
  Sender: FDA-Public Use
  Company Number: PHHY2019HU089055

PATIENT
  Age: 18 Year
  Sex: Male

DRUGS (1)
  1. MOMETASONE [Suspect]
     Active Substance: MOMETASONE
     Indication: DERMATITIS ATOPIC
     Route: 003

REACTIONS (6)
  - Obesity [Recovering/Resolving]
  - Gynaecomastia [Recovering/Resolving]
  - Skin striae [Recovering/Resolving]
  - Skin atrophy [Recovering/Resolving]
  - Cushing^s syndrome [Recovering/Resolving]
  - Hypertension [Recovering/Resolving]
